FAERS Safety Report 9851904 (Version 1)
Quarter: 2013Q4

REPORT INFORMATION
  Report Type: Spontaneous
  Country: US (occurrence: None)
  Receive Date: 20131127
  Receipt Date: 20131127
  Transmission Date: 20140711
  Serious: Yes (Other)
  Sender: FDA-Public Use
  Company Number: 223319LEO

PATIENT
  Age: 61 Year
  Sex: Male

DRUGS (1)
  1. PICATO [Suspect]
     Indication: ACTINIC KERATOSIS
     Route: 061
     Dates: start: 20130804, end: 20130806

REACTIONS (6)
  - Application site reaction [None]
  - Application site erythema [None]
  - Application site pain [None]
  - Application site swelling [None]
  - Application site exfoliation [None]
  - Application site pain [None]
